FAERS Safety Report 5415088-9 (Version None)
Quarter: 2007Q3

REPORT INFORMATION
  Report Type: 
  Country: None (occurrence: None)
  Receive Date: 20070815
  Receipt Date: 20070524
  Transmission Date: 20080115
  Serious: No
  Sender: FDA-Public Use
  Company Number: A0653380A

PATIENT
  Age: 79 Year
  Sex: Male

DRUGS (9)
  1. COREG CR [Suspect]
     Indication: HYPERTENSION
     Dosage: 20MG PER DAY
     Route: 048
  2. PLAVIX [Concomitant]
  3. UNKNOWN [Concomitant]
  4. ASPIRIN [Concomitant]
  5. K-TAB [Concomitant]
  6. NORVASC [Concomitant]
  7. ALTACE [Concomitant]
  8. LIPITOR [Concomitant]
  9. MULTI-VITAMIN [Concomitant]

REACTIONS (1)
  - FATIGUE [None]
